FAERS Safety Report 18136579 (Version 1)
Quarter: 2020Q3

REPORT INFORMATION
  Report Type: Spontaneous
  Country: CA (occurrence: CA)
  Receive Date: 20200811
  Receipt Date: 20200811
  Transmission Date: 20201103
  Serious: Yes (Other)
  Sender: FDA-Public Use
  Company Number: CA-TEVA-2020-CA-1811989

PATIENT
  Sex: Female

DRUGS (1)
  1. MIRTAZAPINE. [Suspect]
     Active Substance: MIRTAZAPINE
     Indication: PRODUCT USED FOR UNKNOWN INDICATION
     Route: 065

REACTIONS (7)
  - Coordination abnormal [Unknown]
  - Abnormal dreams [Unknown]
  - Memory impairment [Unknown]
  - Swollen tongue [Unknown]
  - Asthenia [Unknown]
  - Speech disorder [Unknown]
  - Electric shock [Unknown]
